FAERS Safety Report 5615961-2 (Version None)
Quarter: 2008Q1

REPORT INFORMATION
  Report Type: 
  Country: None (occurrence: None)
  Receive Date: 20080206
  Receipt Date: 20080114
  Transmission Date: 20080703
  Serious: Yes (Death)
  Sender: FDA-Public Use
  Company Number: PHBS2008US01569

PATIENT
  Age: 34 Year
  Sex: Male

DRUGS (6)
  1. METHYLPHENIDATE HCL [Suspect]
  2. BUPROPION HCL [Suspect]
  3. CLONAZEPAM [Suspect]
  4. PROPOXYPHENE HCL AND ACETAMINOPHEN [Suspect]
  5. ETHANOL [Suspect]
  6. BENZODIAZEPINES [Suspect]

REACTIONS (5)
  - CARDIAC ARREST [None]
  - DRUG SCREEN POSITIVE [None]
  - INTENTIONAL OVERDOSE [None]
  - LOSS OF CONSCIOUSNESS [None]
  - SUICIDE ATTEMPT [None]
